FAERS Safety Report 24936110 (Version 1)
Quarter: 2025Q1

REPORT INFORMATION
  Report Type: Spontaneous
  Country: IN (occurrence: IN)
  Receive Date: 20250206
  Receipt Date: 20250206
  Transmission Date: 20250408
  Serious: Yes (Life-Threatening, Hospitalization)
  Sender: ACCORD
  Company Number: IN-MLMSERVICE-20250120-PI365854-00291-1

PATIENT
  Age: 70 Year
  Sex: Male

DRUGS (7)
  1. ROSUVASTATIN CALCIUM [Interacting]
     Active Substance: ROSUVASTATIN CALCIUM
     Indication: Coronary artery disease
  2. ABIRATERONE [Interacting]
     Active Substance: ABIRATERONE
     Indication: Prostate cancer metastatic
  3. PREDNISOLONE [Interacting]
     Active Substance: PREDNISOLONE
     Indication: Prostate cancer metastatic
  4. PREDNISOLONE [Interacting]
     Active Substance: PREDNISOLONE
     Indication: Metastases to lymph nodes
  5. ABIRATERONE [Interacting]
     Active Substance: ABIRATERONE
     Indication: Metastases to bone
  6. ABIRATERONE [Interacting]
     Active Substance: ABIRATERONE
     Indication: Metastases to lymph nodes
  7. PREDNISOLONE [Interacting]
     Active Substance: PREDNISOLONE
     Indication: Metastases to bone

REACTIONS (5)
  - Rhabdomyolysis [Recovered/Resolved]
  - Acute kidney injury [Recovered/Resolved]
  - Metabolic acidosis [Recovered/Resolved]
  - Drug interaction [Unknown]
  - Liver function test abnormal [Recovered/Resolved]
